FAERS Safety Report 9663654 (Version 3)
Quarter: 2014Q1

REPORT INFORMATION
  Report Type: Report from Study
  Country: AR (occurrence: AR)
  Receive Date: 20131101
  Receipt Date: 20140228
  Transmission Date: 20141002
  Serious: Yes (Other)
  Sender: FDA-Public Use
  Company Number: PHHY2013AR123445

PATIENT
  Sex: Male

DRUGS (2)
  1. GALVUS [Suspect]
     Indication: TYPE 2 DIABETES MELLITUS
     Dosage: 50 MG, DAILY
     Route: 048
  2. DIOVAN [Suspect]
     Indication: HYPERTENSION
     Dosage: 80 MG, BID
     Route: 048

REACTIONS (7)
  - Hypersensitivity [Recovering/Resolving]
  - Asthma [Not Recovered/Not Resolved]
  - Lung disorder [Recovering/Resolving]
  - Dyspnoea [Not Recovered/Not Resolved]
  - Malaise [Unknown]
  - Blood pressure increased [Unknown]
  - Respiratory fatigue [Not Recovered/Not Resolved]
